FAERS Safety Report 7504126-5 (Version None)
Quarter: 2011Q2

REPORT INFORMATION
  Report Type: 
  Country: None (occurrence: None)
  Receive Date: 20110401
  Receipt Date: 20110201
  Transmission Date: 20111010
  Serious: No
  Sender: FDA-Public Use
  Company Number: US-004676

PATIENT
  Sex: Male
  Weight: 87 kg

DRUGS (2)
  1. FIRMAGON [Suspect]
     Indication: PROSTATE CANCER
     Dosage: 240 MG 1X SUBCUTANEOUS
     Route: 058
     Dates: start: 20110117
  2. HYDROCHLKOROTHIAZIDE [Concomitant]

REACTIONS (4)
  - POLLAKIURIA [None]
  - INJECTION SITE ERYTHEMA [None]
  - GENITAL BURNING SENSATION [None]
  - ABDOMINAL PAIN [None]
